FAERS Safety Report 6058705-5 (Version None)
Quarter: 2009Q1

REPORT INFORMATION
  Report Type: 
  Country: None (occurrence: None)
  Receive Date: 20090130
  Receipt Date: 20090120
  Transmission Date: 20090719
  Serious: Yes (Death, Life-Threatening, Hospitalization)
  Sender: FDA-Public Use
  Company Number: DE-WYE-G02543008

PATIENT
  Sex: Female
  Weight: 53 kg

DRUGS (5)
  1. TYGACIL [Suspect]
     Indication: PERITONITIS
     Route: 042
     Dates: start: 20080406, end: 20080415
  2. CIPROFLOXACIN [Concomitant]
     Dosage: UNKNOWN
     Dates: start: 20080409
  3. ANTI-PHOSPHAT [Concomitant]
     Dosage: UNKNOWN
  4. NEXIUM [Concomitant]
     Dosage: UNKNOWN
  5. SIMVASTATIN [Concomitant]

REACTIONS (13)
  - ARTERIOSCLEROSIS [None]
  - BLOOD BILIRUBIN INCREASED [None]
  - CHOLECYSTITIS [None]
  - CONDITION AGGRAVATED [None]
  - ENTEROBACTER PNEUMONIA [None]
  - HEPATIC ENZYME INCREASED [None]
  - HEPATORENAL SYNDROME [None]
  - MULTI-ORGAN FAILURE [None]
  - MYOCARDIAL INFARCTION [None]
  - RENAL FAILURE [None]
  - SEPSIS [None]
  - TACHYARRHYTHMIA [None]
  - THROMBOCYTOPENIA [None]
